FAERS Safety Report 4676414-1 (Version None)
Quarter: 2005Q2

REPORT INFORMATION
  Report Type: 
  Country: None (occurrence: None)
  Receive Date: 20050527
  Receipt Date: 20050517
  Transmission Date: 20051028
  Serious: Yes (Hospitalization)
  Sender: FDA-Public Use
  Company Number: US-MERCK-0505USA02142

PATIENT
  Age: 55 Year
  Sex: Female

DRUGS (9)
  1. METFORMIN [Concomitant]
     Route: 065
  2. TRIAMTERENE [Concomitant]
     Route: 065
  3. DIOVAN [Concomitant]
     Route: 065
  4. HYDROXYCHLOROQUINE SULFATE [Concomitant]
     Route: 065
  5. STARLIX [Concomitant]
     Route: 065
  6. PERCOCET [Concomitant]
     Route: 065
  7. ZOCOR [Suspect]
     Route: 048
  8. DURAGESIC-100 [Concomitant]
     Route: 061
     Dates: end: 20040805
  9. NEURONTIN [Concomitant]
     Route: 065

REACTIONS (15)
  - ACUTE MYOCARDIAL INFARCTION [None]
  - ADVERSE EVENT [None]
  - ANAEMIA [None]
  - ANXIETY [None]
  - DEAFNESS UNILATERAL [None]
  - DECUBITUS ULCER [None]
  - DEPRESSED LEVEL OF CONSCIOUSNESS [None]
  - DYSPNOEA [None]
  - FLUID RETENTION [None]
  - HEPATIC FAILURE [None]
  - NIGHTMARE [None]
  - PNEUMONIA [None]
  - RENAL FAILURE ACUTE [None]
  - RHABDOMYOLYSIS [None]
  - TENDON INJURY [None]
